FAERS Safety Report 9223725 (Version 1)
Quarter: 2013Q2

REPORT INFORMATION
  Report Type: Spontaneous
  Country: DE (occurrence: ES)
  Receive Date: 20130410
  Receipt Date: 20130410
  Transmission Date: 20140414
  Serious: Yes (Hospitalization)
  Sender: FDA-Public Use
  Company Number: ES-FRI-1000044148

PATIENT
  Sex: Male

DRUGS (2)
  1. ROFLUMILAST [Suspect]
     Indication: CHRONIC OBSTRUCTIVE PULMONARY DISEASE
     Dosage: 500 MCG
     Route: 048
  2. ROFLUMILAST [Suspect]
     Dosage: 500 MCG QOD
     Route: 048

REACTIONS (3)
  - Vasculitis [Unknown]
  - Pain in extremity [Unknown]
  - Medication error [Unknown]
